FAERS Safety Report 13901375 (Version 1)
Quarter: 2017Q3

REPORT INFORMATION
  Report Type: Spontaneous
  Country: AU (occurrence: AU)
  Receive Date: 20170824
  Receipt Date: 20170824
  Transmission Date: 20171127
  Serious: Yes (Hospitalization)
  Sender: FDA-Public Use
  Company Number: AU-JNJFOC-20170817988

PATIENT
  Age: 43 Year
  Sex: Female

DRUGS (1)
  1. INVEGA [Suspect]
     Active Substance: PALIPERIDONE
     Indication: SCHIZOPHRENIA
     Route: 048

REACTIONS (9)
  - Galactorrhoea [Unknown]
  - Tachycardia [Unknown]
  - Vomiting [Unknown]
  - Dyspnoea exertional [Unknown]
  - Nausea [Unknown]
  - Hospitalisation [Unknown]
  - Lower respiratory tract infection [Unknown]
  - Hyperprolactinaemia [Unknown]
  - Dizziness [Unknown]

NARRATIVE: CASE EVENT DATE: 20170701
